FAERS Safety Report 8341128-3 (Version None)
Quarter: 2012Q2

REPORT INFORMATION
  Report Type: 
  Country: None (occurrence: None)
  Receive Date: 20120507
  Receipt Date: 20120504
  Transmission Date: 20120825
  Serious: Yes (Other)
  Sender: FDA-Public Use
  Company Number: DE-VIIV HEALTHCARE LIMITED-D0075478A

PATIENT
  Sex: Male

DRUGS (1)
  1. EPIVIR [Suspect]
     Indication: HIV TEST POSITIVE
     Route: 065

REACTIONS (1)
  - HEPATIC ENZYME INCREASED [None]
